FAERS Safety Report 6767710-2 (Version None)
Quarter: 2010Q2

REPORT INFORMATION
  Report Type: 
  Country: None (occurrence: None)
  Receive Date: 20100614
  Receipt Date: 20100609
  Transmission Date: 20101027
  Serious: Yes (Hospitalization)
  Sender: FDA-Public Use
  Company Number: FR-ROCHE-695039

PATIENT
  Sex: Male
  Weight: 63 kg

DRUGS (11)
  1. PEGINTERFERON ALFA-2A [Suspect]
     Dosage: DRUG REPORTED AS PEGASYS
     Route: 058
     Dates: start: 20100222
  2. PEGINTERFERON ALFA-2A [Suspect]
     Dosage: PEGASYS WAS REINTRODUCED AT A REDUED DOSE.
     Route: 058
     Dates: start: 20100309
  3. RIBAVIRIN [Suspect]
     Route: 048
     Dates: start: 20100222
  4. VIREAD [Concomitant]
     Dosage: TOTAL DAILY DOSE REPORTED AS 1 TABLET
     Dates: start: 20100107
  5. REYATAZ [Concomitant]
     Dates: start: 20080318
  6. NORVIR [Concomitant]
     Dates: start: 20080318
  7. VIRAMUNE [Concomitant]
     Dates: start: 20080318
  8. DOLIPRANE [Concomitant]
     Dosage: TOTAL DAILY DOSE REPORTED AS IF REQUIRED
     Dates: start: 20100222
  9. FORTIMEL [Concomitant]
     Dosage: TDD:2 VIALS
  10. NEORECORMON [Concomitant]
     Dosage: TDD:30000 IU PER WEEK
  11. DEXERYL [Concomitant]
     Dosage: TDD:1 APPLICATION

REACTIONS (1)
  - LUNG DISORDER [None]
